FAERS Safety Report 25852749 (Version 1)
Quarter: 2025Q3

REPORT INFORMATION
  Report Type: Spontaneous
  Country: US (occurrence: US)
  Receive Date: 20250926
  Receipt Date: 20250926
  Transmission Date: 20251020
  Serious: No
  Sender: GLAND PHARMA LTD
  Company Number: US-GLANDPHARMA-US-2025GLNSPO01771

PATIENT

DRUGS (1)
  1. DOXYCYCLINE [Suspect]
     Active Substance: DOXYCYCLINE
     Indication: Localised infection
     Route: 065

REACTIONS (7)
  - Swelling [Unknown]
  - Blister [Unknown]
  - Pain [Unknown]
  - Condition aggravated [Unknown]
  - Apraxia [Unknown]
  - Sunburn [Unknown]
  - Erythema [Unknown]
